FAERS Safety Report 15578617 (Version 1)
Quarter: 2018Q4

REPORT INFORMATION
  Report Type: Spontaneous
  Country: US (occurrence: US)
  Receive Date: 20181102
  Receipt Date: 20181102
  Transmission Date: 20190205
  Serious: Yes (Other)
  Sender: FDA-Public Use
  Company Number: US-MYLANLABS-2018M1080008

PATIENT
  Age: 22 Year
  Sex: Female
  Weight: 46.8 kg

DRUGS (3)
  1. MAGNESIUM [Suspect]
     Active Substance: MAGNESIUM
     Dosage: 6 G, LOADING DOSE
  2. SEVOFLURANE. [Concomitant]
     Active Substance: SEVOFLURANE
     Indication: GENERAL ANAESTHESIA
     Dosage: SEVOFLURANE IN OXYGEN AT MINIMUM ALVEOLAR CONCENTRATION 0.6
  3. MAGNESIUM [Suspect]
     Active Substance: MAGNESIUM
     Indication: TOCOLYSIS
     Dosage: 2 G, UNK
     Route: 041

REACTIONS (4)
  - Incorrect dose administered [Recovered/Resolved]
  - Maternal exposure during pregnancy [Recovered/Resolved]
  - Delayed recovery from anaesthesia [Recovered/Resolved]
  - Hypothermia [Recovered/Resolved]
